FAERS Safety Report 17357423 (Version 1)
Quarter: 2020Q1

REPORT INFORMATION
  Report Type: Spontaneous
  Country: CH (occurrence: CH)
  Receive Date: 20200131
  Receipt Date: 20200131
  Transmission Date: 20200409
  Serious: Yes (Life-Threatening, Hospitalization, Disabling)
  Sender: FDA-Public Use
  Company Number: CH-009507513-2001CHE010443

PATIENT
  Age: 27 Year
  Sex: Female

DRUGS (5)
  1. NUVARING [Suspect]
     Active Substance: ETHINYL ESTRADIOL\ETONOGESTREL
     Indication: CONTRACEPTION
     Dosage: NUVARING SINCE DEC2018. STOPPED AT THE END OF 2019. PREVIOUSLY APPROX. 2016/2017, NOT IN NOV2018
     Route: 067
     Dates: start: 201812, end: 201911
  2. MONTELUKAST SODIUM. [Suspect]
     Active Substance: MONTELUKAST SODIUM
     Indication: ASTHMA
     Dosage: 10 MILLIGRAM, QD
     Route: 048
     Dates: start: 2017
  3. RELVAR ELLIPTA [Suspect]
     Active Substance: FLUTICASONE FUROATE\VILANTEROL TRIFENATATE
     Indication: ASTHMA
     Dosage: 184 MICROGRAM, QD
     Route: 055
     Dates: start: 2017
  4. MG5 ORALEFF [Concomitant]
     Dosage: 7.5 MILLIMOLE, QD
     Route: 048
     Dates: start: 201812
  5. BRUFEN [Suspect]
     Active Substance: IBUPROFEN
     Dosage: 800 MILLIGRAM, Q12H
     Dates: end: 20181127

REACTIONS (4)
  - Contraindicated product administered [Not Recovered/Not Resolved]
  - Hypertension [Unknown]
  - Basal ganglia haemorrhage [Not Recovered/Not Resolved]
  - Migraine [Unknown]

NARRATIVE: CASE EVENT DATE: 201811
